FAERS Safety Report 22675324 (Version 3)
Quarter: 2023Q4

REPORT INFORMATION
  Report Type: Other
  Country: DE (occurrence: None)
  Receive Date: 20230706
  Receipt Date: 20231229
  Transmission Date: 20240109
  Serious: Yes (Hospitalization)
  Sender: FDA-Public Use
  Company Number: DE-ROCHE-3380417

PATIENT
  Age: 49 Year
  Sex: Female
  Weight: 59 kg

DRUGS (7)
  1. OCREVUS [Suspect]
     Active Substance: OCRELIZUMAB
     Indication: Relapsing multiple sclerosis
     Route: 042
     Dates: start: 20190205, end: 20190219
  2. OCREVUS [Suspect]
     Active Substance: OCRELIZUMAB
     Route: 042
     Dates: start: 20190813
  3. BACLOFEN [Concomitant]
     Active Substance: BACLOFEN
     Route: 048
     Dates: start: 201501
  4. IBUPROFEN [Concomitant]
     Active Substance: IBUPROFEN
     Indication: Migraine
     Route: 048
  5. GABAPENTIN [Concomitant]
     Active Substance: GABAPENTIN
     Route: 048
     Dates: start: 201310
  6. CITALOPRAM [Concomitant]
     Active Substance: CITALOPRAM HYDROBROMIDE
     Route: 048
     Dates: start: 2012
  7. NABIXIMOLS [Concomitant]
     Active Substance: NABIXIMOLS
     Dosage: DEFINITION OF THE INTERVAL: AS REQUIRED
     Route: 060
     Dates: start: 201410

REACTIONS (5)
  - Craniofacial fracture [Not Recovered/Not Resolved]
  - Syncope [Recovered/Resolved]
  - Haematoma muscle [Recovered/Resolved]
  - Fall [Unknown]
  - Fibrin D dimer increased [Recovered/Resolved]

NARRATIVE: CASE EVENT DATE: 20230223
